FAERS Safety Report 6533199-1 (Version None)
Quarter: 2010Q1

REPORT INFORMATION
  Report Type: 
  Country: None (occurrence: None)
  Receive Date: 20100111
  Receipt Date: 20100104
  Transmission Date: 20100710
  Serious: Yes (Hospitalization, Other)
  Sender: FDA-Public Use
  Company Number: JP-JNJFOC-20091206848

PATIENT
  Sex: Female
  Weight: 47 kg

DRUGS (8)
  1. DOXORUBICIN HCL [Suspect]
     Indication: OVARIAN CANCER RECURRENT
     Dosage: CYCLES 1-5
     Route: 042
  2. DOXORUBICIN HCL [Suspect]
     Route: 042
  3. DOXORUBICIN HCL [Suspect]
     Route: 042
  4. MAGMITT [Concomitant]
     Route: 048
  5. PRIMPERAN TAB [Concomitant]
     Indication: PROPHYLAXIS
     Route: 048
  6. WYPAX [Concomitant]
     Indication: PROPHYLAXIS
     Route: 048
  7. FLAVITAN [Concomitant]
     Indication: STOMATITIS
     Route: 048
  8. DEXALTIN [Concomitant]
     Indication: STOMATITIS
     Route: 049

REACTIONS (1)
  - CEREBRAL HAEMORRHAGE [None]
